FAERS Safety Report 8466966 (Version 2)
Quarter: 2012Q4

REPORT INFORMATION
  Report Type: 
  Country: US (occurrence: US)
  Receive Date: 20120320
  Receipt Date: 20121016
  Transmission Date: 20130627
  Serious: Yes (Hospitalization)
  Sender: FDA-Public Use
  Company Number: US-US-EMD SERONO, INC.-7118613

PATIENT
  Age: 30 None
  Sex: Female

DRUGS (6)
  1. REBIF [Suspect]
     Indication: MULTIPLE SCLEROSIS
     Route: 058
     Dates: start: 20070205
  2. LAMICTAL [Concomitant]
     Indication: MIGRAINE
  3. CYMBALTA [Concomitant]
     Indication: BACK PAIN
  4. LYRICA [Concomitant]
     Indication: PAIN
  5. TOPAMAX [Concomitant]
     Indication: MIGRAINE
  6. MIGRANAL [Concomitant]
     Indication: MIGRAINE

REACTIONS (3)
  - Atypical pneumonia [Recovered/Resolved]
  - Malaise [Unknown]
  - Drug administration error [Unknown]
